FAERS Safety Report 24384635 (Version 1)
Quarter: 2024Q4

REPORT INFORMATION
  Report Type: Spontaneous
  Country: CN (occurrence: CN)
  Receive Date: 20241001
  Receipt Date: 20241001
  Transmission Date: 20250114
  Serious: Yes (Other)
  Sender: NOVARTIS
  Company Number: CN-002147023-NVSC2024CN192956

PATIENT
  Age: 53 Year
  Sex: Male
  Weight: 65 kg

DRUGS (2)
  1. SACUBITRIL\VALSARTAN [Suspect]
     Active Substance: SACUBITRIL\VALSARTAN
     Indication: Arteriosclerosis coronary artery
     Dosage: 50 MG, BID
     Route: 048
     Dates: start: 20240831, end: 20240918
  2. ATORVASTATIN CALCIUM [Concomitant]
     Active Substance: ATORVASTATIN CALCIUM
     Indication: Arteriosclerosis coronary artery
     Dosage: 10 MG, QD
     Route: 048
     Dates: start: 20240828, end: 20240918

REACTIONS (4)
  - Angioedema [Recovered/Resolved]
  - Erythema [Recovered/Resolved]
  - Swelling [Recovered/Resolved]
  - Off label use [Unknown]

NARRATIVE: CASE EVENT DATE: 20240831
